FAERS Safety Report 8395619 (Version 3)
Quarter: 2014Q3

REPORT INFORMATION
  Report Type: Spontaneous
  Country: US (occurrence: US)
  Receive Date: 20120208
  Receipt Date: 20140716
  Transmission Date: 20150326
  Serious: Yes (Other)
  Sender: FDA-Public Use
  Company Number: US-ROCHE-1036623

PATIENT
  Sex: Male
  Weight: 97.61 kg

DRUGS (2)
  1. ACCUTANE [Suspect]
     Active Substance: ISOTRETINOIN
     Route: 065
     Dates: start: 1990
  2. ACCUTANE [Suspect]
     Active Substance: ISOTRETINOIN
     Indication: ACNE
     Route: 065
     Dates: start: 1983

REACTIONS (4)
  - Depression [Not Recovered/Not Resolved]
  - Osteoarthritis [Unknown]
  - Colitis ulcerative [Unknown]
  - Injury [Unknown]

NARRATIVE: CASE EVENT DATE: 2006
